FAERS Safety Report 16871285 (Version 1)
Quarter: 2019Q4

REPORT INFORMATION
  Report Type: Spontaneous
  Country: US (occurrence: US)
  Receive Date: 20191001
  Receipt Date: 20191001
  Transmission Date: 20200122
  Serious: Yes (Death, Life-Threatening, Hospitalization, Other)
  Sender: FDA-Public Use
  Company Number: US-MICRO LABS LIMITED-ML2019-02528

PATIENT
  Age: 67 Year
  Sex: Female

DRUGS (5)
  1. CLINDAMYCIN. [Suspect]
     Active Substance: CLINDAMYCIN
  2. LEVOFLOXACIN. [Suspect]
     Active Substance: LEVOFLOXACIN
  3. VANCOMYCIN [Suspect]
     Active Substance: VANCOMYCIN
  4. METRONIDAZOLE. [Suspect]
     Active Substance: METRONIDAZOLE
  5. CEFTAROLINE [Suspect]
     Active Substance: CEFTAROLINE

REACTIONS (1)
  - Toxic epidermal necrolysis [Fatal]
